FAERS Safety Report 10439464 (Version 1)
Quarter: 2014Q3

REPORT INFORMATION
  Report Type: Spontaneous
  Country: US (occurrence: US)
  Receive Date: 20140908
  Receipt Date: 20140908
  Transmission Date: 20150326
  Serious: No
  Sender: FDA-Public Use
  Company Number: US-BRISTOL-MYERS SQUIBB COMPANY-20630620

PATIENT
  Age: 59 Year
  Sex: Female

DRUGS (2)
  1. LITHIUM [Concomitant]
     Active Substance: LITHIUM CARBONATE
  2. ABILIFY [Suspect]
     Active Substance: ARIPIPRAZOLE
     Indication: BIPOLAR DISORDER
     Route: 048
     Dates: start: 2003

REACTIONS (1)
  - Parkinsonism [Recovered/Resolved]
